APPROVED DRUG PRODUCT: CARBIDOPA, LEVODOPA AND ENTACAPONE
Active Ingredient: CARBIDOPA; ENTACAPONE; LEVODOPA
Strength: 18.75MG;200MG;75MG
Dosage Form/Route: TABLET;ORAL
Application: A214495 | Product #002 | TE Code: AB
Applicant: MACLEODS PHARMACEUTICALS LTD
Approved: Apr 15, 2025 | RLD: No | RS: No | Type: RX